FAERS Safety Report 7497228-3 (Version None)
Quarter: 2011Q2

REPORT INFORMATION
  Report Type: 
  Country: None (occurrence: None)
  Receive Date: 20110516
  Receipt Date: 20110503
  Transmission Date: 20111010
  Serious: Yes (Hospitalization)
  Sender: FDA-Public Use
  Company Number: 2011MA004908

PATIENT
  Age: 53 Year
  Sex: Male

DRUGS (2)
  1. SERTRALINE HYDROCHLORIDE [Concomitant]
  2. NAPROXEN [Suspect]
     Dosage: 500 MG; BID;

REACTIONS (11)
  - OBSTRUCTIVE AIRWAYS DISORDER [None]
  - SERUM SEROTONIN DECREASED [None]
  - HAEMORRHAGIC DIATHESIS [None]
  - DYSPNOEA [None]
  - EPISTAXIS [None]
  - MOUTH ULCERATION [None]
  - HAEMORRHAGE [None]
  - PLATELET COUNT DECREASED [None]
  - OEDEMA MOUTH [None]
  - LIP AND/OR ORAL CAVITY CANCER [None]
  - TOOTH EXTRACTION [None]
